FAERS Safety Report 20430203 (Version 1)
Quarter: 2022Q1

REPORT INFORMATION
  Report Type: Report from Study
  Country: US (occurrence: US)
  Receive Date: 20220204
  Receipt Date: 20220204
  Transmission Date: 20220424
  Serious: Yes (Hospitalization)
  Sender: FDA-Public Use
  Company Number: 2020210121

PATIENT

DRUGS (8)
  1. ONCASPAR [Suspect]
     Active Substance: PEGASPARGASE
     Indication: Acute lymphocytic leukaemia
     Dosage: 3750 IU, OTHER
     Route: 042
     Dates: start: 20191124, end: 20200331
  2. CYCLOPHOSPHAMIDE [Suspect]
     Active Substance: CYCLOPHOSPHAMIDE
     Indication: Acute lymphocytic leukaemia
     Dosage: UNK
     Route: 042
     Dates: start: 20191223, end: 20200102
  3. CYTARABINE [Suspect]
     Active Substance: CYTARABINE
     Indication: Acute lymphocytic leukaemia
     Dosage: UNK
     Route: 042
     Dates: start: 20191121, end: 20200130
  4. MERCAPTOPURINE [Suspect]
     Active Substance: MERCAPTOPURINE
     Indication: Acute lymphocytic leukaemia
     Dosage: UNK
     Route: 065
     Dates: start: 20191223, end: 20200105
  5. METHOTREXATE [Suspect]
     Active Substance: METHOTREXATE
     Indication: Acute lymphocytic leukaemia
     Dosage: UNK MG
     Route: 037
     Dates: start: 20191128, end: 20200420
  6. VINCRISTINE SULFATE [Suspect]
     Active Substance: VINCRISTINE SULFATE
     Indication: Acute lymphocytic leukaemia
     Dosage: UNK UNK, ONE DOSE
     Route: 065
     Dates: start: 20191121, end: 20200420
  7. DEXAMETHASONE [Suspect]
     Active Substance: DEXAMETHASONE
     Indication: Acute lymphocytic leukaemia
     Dosage: UNK
     Route: 065
     Dates: start: 20191121, end: 20191212
  8. DAUNORUBICIN [Suspect]
     Active Substance: DAUNORUBICIN
     Indication: Acute lymphocytic leukaemia
     Dosage: UNK
     Route: 065
     Dates: start: 20101121, end: 20191212

REACTIONS (2)
  - Syncope [Recovered/Resolved]
  - Hypertriglyceridaemia [Recovered/Resolved]

NARRATIVE: CASE EVENT DATE: 20200110
